FAERS Safety Report 5123103-5 (Version None)
Quarter: 2006Q4

REPORT INFORMATION
  Report Type: 
  Country: None (occurrence: None)
  Receive Date: 20061004
  Receipt Date: 20061004
  Transmission Date: 20070319
  Serious: Yes (Hospitalization)
  Sender: FDA-Public Use
  Company Number: None

PATIENT
  Age: 76 Year
  Sex: Male
  Weight: 88.7 kg

DRUGS (2)
  1. LITHIUM 300 MG [Suspect]
     Indication: PSYCHOTIC DISORDER
     Dosage: 300 MG PO BID
     Route: 048
     Dates: end: 20060711
  2. FLUPHENAZINE [Suspect]
     Indication: PSYCHOTIC DISORDER
     Dosage: 20 MG PO DAILY
     Route: 048
     Dates: end: 20060711

REACTIONS (3)
  - ANTIPSYCHOTIC DRUG LEVEL INCREASED [None]
  - MENTAL STATUS CHANGES [None]
  - RENAL FAILURE ACUTE [None]
